FAERS Safety Report 4977420-X (Version None)
Quarter: 2006Q2

REPORT INFORMATION
  Report Type: 
  Country: None (occurrence: None)
  Receive Date: 20060413
  Receipt Date: 20060405
  Transmission Date: 20061013
  Serious: Yes (Other)
  Sender: FDA-Public Use
  Company Number: 2006-DE-01486GD

PATIENT

DRUGS (4)
  1. ACETAMINOPHEN [Suspect]
     Indication: PROCEDURAL PAIN
     Dosage: 80 MG/KG, PR
  2. DICLOFENAC (DICLOFENAC) [Suspect]
     Indication: PROCEDURAL PAIN
     Dosage: 3 MG/KG (THRICE DAILY), PO
     Route: 048
  3. PRITRAMIDE (PIRITRAMIDE) [Suspect]
     Indication: PROCEDURAL PAIN
     Dosage: 0.1 MG/KG ON THE DAY OF OPERATION, ADDITIONAL BOLUSES OF 0.05 MG/KG ON POSTOPERATIVE DAY 1 IF NEEDED
     Route: 042
  4. SEVOFLURANE [Concomitant]

REACTIONS (2)
  - PLATELET AGGREGATION ABNORMAL [None]
  - POST PROCEDURAL HAEMORRHAGE [None]
